FAERS Safety Report 9525990 (Version 1)
Quarter: 2013Q1

REPORT INFORMATION
  Report Type: Spontaneous
  Country: US (occurrence: None)
  Receive Date: 20130314
  Receipt Date: 20130314
  Transmission Date: 20140127
  Serious: No
  Sender: FDA-Public Use
  Company Number: 1302USA000084

PATIENT
  Age: 57 Year
  Sex: Female

DRUGS (13)
  1. VICTRELIS (BOCEPREVIR) CAPSULE, 200MG [Suspect]
     Dosage: 200 MG 4 CAPSULES WITH FOOD, Q8H, ORAL
  2. RIBAVIRIN (RIBAVIRIN) CAPSULE, 200MG [Suspect]
  3. PEGASYS (PEGINTERFERON ALFA-2A) INJECTION [Suspect]
     Dosage: 180 MCG/M
  4. LYRICA (PREGABALIN) [Concomitant]
  5. ONDANSETRON (ONDANSETRON) [Concomitant]
  6. POLYETHYLENE GLYCOL (POLYETHYLENE GLYCOL) [Concomitant]
  7. AMRIX (CYCLOBENZAPRINE HYDROCHLORIDE) [Concomitant]
  8. HYDROCHLOROT (HYDROCHLOROTHIAZIDE) [Concomitant]
  9. ALAVERT (LORATADINE) [Concomitant]
  10. SENNA (SENNA) [Concomitant]
  11. VITAMIN D (UNSPECIFIED) (VITAMIN D (UNSPECIFIED)) [Concomitant]
  12. COLACE (DOCUSATE SODIUM) [Concomitant]
  13. XODOL (ACETAMINOPHEN, HYDROCODONE BITARTRATE) [Concomitant]

REACTIONS (7)
  - Dyspnoea [None]
  - Fatigue [None]
  - Nausea [None]
  - Vomiting [None]
  - Headache [None]
  - Depression [None]
  - Dizziness [None]
